FAERS Safety Report 6844002-4 (Version None)
Quarter: 2010Q3

REPORT INFORMATION
  Report Type: 
  Country: None (occurrence: None)
  Receive Date: 20100715
  Receipt Date: 20100706
  Transmission Date: 20110219
  Serious: Yes (Other)
  Sender: FDA-Public Use
  Company Number: AU-PFIZER INC-2010065751

PATIENT
  Age: 49 Year
  Sex: Female

DRUGS (3)
  1. CHAMPIX [Suspect]
     Indication: SMOKING CESSATION THERAPY
     Dosage: 0.5 MG (DAYS 1 TO 3)
     Route: 048
     Dates: start: 20100511, end: 20100513
  2. CHAMPIX [Suspect]
     Dosage: 0.5 MG, 2X/DAY (DAYS 4 TO 7)
     Route: 048
     Dates: start: 20100514, end: 20100517
  3. CHAMPIX [Suspect]
     Dosage: UNK
     Dates: start: 20100518, end: 20100519

REACTIONS (1)
  - HAEMATURIA [None]
